FAERS Safety Report 14009651 (Version 1)
Quarter: 2017Q3

REPORT INFORMATION
  Report Type: Spontaneous
  Country: US (occurrence: US)
  Receive Date: 20170925
  Receipt Date: 20170925
  Transmission Date: 20171128
  Serious: No
  Sender: FDA-Public Use
  Company Number: US-009507513-1709USA009381

PATIENT
  Sex: Female
  Weight: 71.66 kg

DRUGS (2)
  1. TYLENOL [Concomitant]
     Active Substance: ACETAMINOPHEN
  2. NEXPLANON [Suspect]
     Active Substance: ETONOGESTREL
     Indication: CONTRACEPTION
     Dosage: 1 DF, 3 YEARS IMPLANT IN LEFT ARM.
     Route: 059
     Dates: start: 20170224

REACTIONS (4)
  - Influenza like illness [Unknown]
  - Implant site pain [Unknown]
  - Headache [Unknown]
  - Menorrhagia [Unknown]

NARRATIVE: CASE EVENT DATE: 2017
